FAERS Safety Report 25649801 (Version 1)
Quarter: 2025Q3

REPORT INFORMATION
  Report Type: Spontaneous
  Country: EU (occurrence: EU)
  Receive Date: 20250806
  Receipt Date: 20250806
  Transmission Date: 20251020
  Serious: Yes (Other)
  Sender: BAYER HEALTHCARE PHARMACEUTICALS INC.
  Company Number: None

PATIENT
  Age: 31 Year
  Sex: Female
  Weight: 90 kg

DRUGS (5)
  1. GADOBUTROL [Suspect]
     Active Substance: GADOBUTROL
     Indication: Scan with contrast
     Route: 042
     Dates: start: 20250718, end: 20250718
  2. BILASTINE [Concomitant]
     Active Substance: BILASTINE
  3. SYMBICORT [Concomitant]
     Active Substance: BUDESONIDE\FORMOTEROL FUMARATE DIHYDRATE
  4. TOPIRAMATE [Concomitant]
     Active Substance: TOPIRAMATE
  5. PENTASA [Concomitant]
     Active Substance: MESALAMINE

REACTIONS (3)
  - Cough [Recovered/Resolved]
  - Presyncope [Recovered/Resolved]
  - Flushing [Recovered/Resolved]

NARRATIVE: CASE EVENT DATE: 20250718
